FAERS Safety Report 25079075 (Version 1)
Quarter: 2025Q1

REPORT INFORMATION
  Report Type: Spontaneous
  Country: US (occurrence: US)
  Receive Date: 20250314
  Receipt Date: 20250314
  Transmission Date: 20250408
  Serious: No
  Sender: SANOFI AVENTIS
  Company Number: US-SA-2025SA075193

PATIENT
  Sex: Female

DRUGS (28)
  1. DUPIXENT [Suspect]
     Active Substance: DUPILUMAB
     Indication: Asthma
     Dosage: RX#2 INJECT 300 MG (1 PEN) SUBCUTANEOUSLY EVERY 2 WEEKS STARTING ON DAY 15
     Route: 058
     Dates: start: 20250205
  2. LEQVIO [Concomitant]
     Active Substance: INCLISIRAN SODIUM
  3. PRAMIPEXOLE [Concomitant]
     Active Substance: PRAMIPEXOLE
  4. ASPIRIN [Concomitant]
     Active Substance: ASPIRIN
  5. CALCIUM\CHOLECALCIFEROL [Concomitant]
     Active Substance: CALCIUM\CHOLECALCIFEROL
  6. CLOTRIMAZOLE [Concomitant]
     Active Substance: CLOTRIMAZOLE
  7. EPINEPHRINE [Concomitant]
     Active Substance: EPINEPHRINE
  8. EZETIMIBE [Concomitant]
     Active Substance: EZETIMIBE
  9. FUROSEMIDE [Concomitant]
     Active Substance: FUROSEMIDE
  10. IPRATROPIUM [Concomitant]
     Active Substance: IPRATROPIUM
  11. VITAMINS [Concomitant]
     Active Substance: VITAMINS
  12. OHTUVAYRE [Concomitant]
     Active Substance: ENSIFENTRINE
  13. PREDNISONE [Concomitant]
     Active Substance: PREDNISONE
  14. ROFLUMILAST [Concomitant]
     Active Substance: ROFLUMILAST
  15. TRAZODONE HCL [Concomitant]
     Active Substance: TRAZODONE HYDROCHLORIDE
  16. VITAMIN C [Concomitant]
     Active Substance: ASCORBIC ACID
  17. ZYRTEC [Concomitant]
     Active Substance: CETIRIZINE HYDROCHLORIDE
  18. ALBUTEROL SULFATE [Concomitant]
     Active Substance: ALBUTEROL SULFATE
  19. ATORVASTATIN [Concomitant]
     Active Substance: ATORVASTATIN
  20. AZITHROMYCIN [Concomitant]
     Active Substance: AZITHROMYCIN
  21. CYCLOBENZAPRINE [Concomitant]
     Active Substance: CYCLOBENZAPRINE
  22. LEVOTHYROXINE [Concomitant]
     Active Substance: LEVOTHYROXINE
  23. LOSARTAN POTASSIUM [Concomitant]
     Active Substance: LOSARTAN POTASSIUM
  24. MELOXICAM [Concomitant]
     Active Substance: MELOXICAM
  25. POTASSIUM [Concomitant]
     Active Substance: POTASSIUM
  26. ROPINIROLE HYDROCHLORIDE [Concomitant]
     Active Substance: ROPINIROLE HYDROCHLORIDE
  27. RYBELSUS [Concomitant]
     Active Substance: SEMAGLUTIDE
  28. TRELEGY ELLIPTA [Concomitant]
     Active Substance: FLUTICASONE FUROATE\UMECLIDINIUM BROMIDE\VILANTEROL TRIFENATATE

REACTIONS (1)
  - Fatigue [Not Recovered/Not Resolved]
